FAERS Safety Report 10089397 (Version 1)
Quarter: 2014Q2

REPORT INFORMATION
  Report Type: Spontaneous
  Country: BR (occurrence: BR)
  Receive Date: 20140421
  Receipt Date: 20140421
  Transmission Date: 20141212
  Serious: Yes (Other)
  Sender: FDA-Public Use
  Company Number: BR-PFIZER INC-2014106114

PATIENT
  Age: 23 Year
  Sex: Female
  Weight: 58 kg

DRUGS (1)
  1. LYRICA [Suspect]
     Indication: LIGAMENT DISORDER
     Dosage: 75 MG, EACH 12 HOURS (TWICE A DAY)
     Route: 048
     Dates: start: 20130414

REACTIONS (1)
  - Joint dislocation [Unknown]
